FAERS Safety Report 14705890 (Version 4)
Quarter: 2018Q4

REPORT INFORMATION
  Report Type: Report from Study
  Country: JP (occurrence: JP)
  Receive Date: 20180402
  Receipt Date: 20181129
  Transmission Date: 20190204
  Serious: Yes (Death, Other)
  Sender: FDA-Public Use
  Company Number: JP-TAKEDA-2018TUS008127

PATIENT
  Age: 35 Year
  Sex: Female
  Weight: 37 kg

DRUGS (12)
  1. DASATINIB MONOHYDRATE [Concomitant]
     Active Substance: DASATINIB
     Dosage: 100 MG, QD
     Route: 065
     Dates: start: 20170518, end: 20170703
  2. PONATINIB [Suspect]
     Active Substance: PONATINIB
     Dosage: 45 MG, QD
     Route: 048
     Dates: start: 20170807, end: 20170811
  3. ANTITHYMOCYTE IMMUNOGLOBULIN (RABBIT) [Concomitant]
     Active Substance: LAPINE T-LYMPHOCYTE IMMUNE GLOBULIN
     Indication: BONE MARROW CONDITIONING REGIMEN
     Dosage: UNK
     Route: 065
  4. TACROLIMUS MONOHYDRATE [Concomitant]
     Active Substance: TACROLIMUS
     Indication: BONE MARROW CONDITIONING REGIMEN
     Dosage: UNK
     Route: 065
  5. PONATINIB [Suspect]
     Active Substance: PONATINIB
     Dosage: 30 MG, QD
     Route: 048
     Dates: start: 20170923, end: 20171023
  6. MELPHALAN. [Concomitant]
     Active Substance: MELPHALAN
     Indication: BONE MARROW CONDITIONING REGIMEN
     Dosage: UNK
     Route: 065
  7. PONATINIB [Suspect]
     Active Substance: PONATINIB
     Indication: ACUTE LYMPHOCYTIC LEUKAEMIA
     Dosage: 30 MG, QD
     Route: 048
     Dates: start: 20170724, end: 20170806
  8. PONATINIB [Suspect]
     Active Substance: PONATINIB
     Dosage: 30 MG, QD
     Route: 048
     Dates: start: 20170821, end: 20170822
  9. DASATINIB MONOHYDRATE [Concomitant]
     Active Substance: DASATINIB
     Indication: ACUTE LYMPHOCYTIC LEUKAEMIA
     Dosage: 100 MG, QD
     Route: 065
  10. GLIVEC [Concomitant]
     Active Substance: IMATINIB MESYLATE
     Indication: ACUTE LYMPHOCYTIC LEUKAEMIA
     Dosage: 400 MG, QD
     Route: 065
  11. FLUDARABINE PHOSPHATE. [Concomitant]
     Active Substance: FLUDARABINE PHOSPHATE
     Indication: BONE MARROW CONDITIONING REGIMEN
     Dosage: UNK
     Route: 065
  12. PONATINIB [Suspect]
     Active Substance: PONATINIB
     Dosage: 15 MG, QD
     Route: 048
     Dates: start: 20170823, end: 20170922

REACTIONS (4)
  - Thrombotic microangiopathy [Fatal]
  - Rash [Recovering/Resolving]
  - Graft versus host disease [Unknown]
  - Rash [Recovering/Resolving]

NARRATIVE: CASE EVENT DATE: 20170811
